FAERS Safety Report 9990528 (Version 1)
Quarter: 2014Q1

REPORT INFORMATION
  Report Type: Spontaneous
  Country: US (occurrence: US)
  Receive Date: 20140310
  Receipt Date: 20140310
  Transmission Date: 20141002
  Serious: No
  Sender: FDA-Public Use
  Company Number: US-PFIZER INC-2014063183

PATIENT
  Age: 48 Year
  Sex: Female
  Weight: 63.49 kg

DRUGS (1)
  1. LYRICA [Suspect]
     Dosage: 300 MG, 2X/DAY (II PO EVERY AM; II PO EVERY PM)
     Route: 048

REACTIONS (1)
  - Drug hypersensitivity [Unknown]
